FAERS Safety Report 15158411 (Version 1)
Quarter: 2018Q3

REPORT INFORMATION
  Report Type: Spontaneous
  Country: US (occurrence: US)
  Receive Date: 20180620
  Receipt Date: 20180620
  Transmission Date: 20181010
  Serious: Yes (Other)
  Sender: FDA-Public Use
  Company Number: None

PATIENT
  Age: 66 Year
  Sex: Male
  Weight: 81.9 kg

DRUGS (2)
  1. LISINOPRIL. [Concomitant]
     Active Substance: LISINOPRIL
  2. BLUE LIZARD SENSITIVE SUNSCREEN [Suspect]
     Active Substance: TITANIUM DIOXIDE\ZINC OXIDE
     Indication: SUNBURN
     Dosage: ?          QUANTITY:1 LOTION;?
     Route: 061
     Dates: start: 20170701, end: 20180525

REACTIONS (2)
  - Application site burn [None]
  - Rash [None]

NARRATIVE: CASE EVENT DATE: 20180515
